FAERS Safety Report 6701760-7 (Version None)
Quarter: 2010Q2

REPORT INFORMATION
  Report Type: 
  Country: None (occurrence: None)
  Receive Date: 20100429
  Receipt Date: 20100423
  Transmission Date: 20101027
  Serious: Yes (Other)
  Sender: FDA-Public Use
  Company Number: PHHY2010DE26471

PATIENT
  Sex: Male

DRUGS (1)
  1. TOBI [Suspect]
     Dosage: SINGLE DOSE
     Dates: start: 20100114

REACTIONS (4)
  - CIRCULATORY COLLAPSE [None]
  - CONFUSIONAL STATE [None]
  - DIZZINESS [None]
  - PALLOR [None]
